FAERS Safety Report 6804670-X (Version None)
Quarter: 2010Q2

REPORT INFORMATION
  Report Type: 
  Country: None (occurrence: None)
  Receive Date: 20100628
  Receipt Date: 20070515
  Transmission Date: 20101027
  Serious: Yes (Other)
  Sender: FDA-Public Use
  Company Number: US-PFIZER INC-2007022486

PATIENT
  Sex: Female
  Weight: 57.2 kg

DRUGS (10)
  1. GENOTROPIN [Suspect]
     Indication: HYPOPITUITARISM
     Route: 058
     Dates: start: 20070201
  2. GENOTROPIN [Suspect]
     Route: 058
     Dates: end: 20070316
  3. PREDNISONE [Concomitant]
  4. SYNTHROID [Concomitant]
  5. CALTRATE [Concomitant]
  6. VITAMIN D [Concomitant]
  7. ALPRAZOLAM [Concomitant]
  8. MECLIZINE [Concomitant]
  9. MYLANTA [Concomitant]
  10. EQUATE [Concomitant]

REACTIONS (6)
  - ABDOMINAL DISCOMFORT [None]
  - ASTHENIA [None]
  - DIZZINESS [None]
  - HOT FLUSH [None]
  - INTRACRANIAL PRESSURE INCREASED [None]
  - VISUAL ACUITY REDUCED [None]
